FAERS Safety Report 8826785 (Version 4)
Quarter: 2012Q4

REPORT INFORMATION
  Report Type: 
  Country: AU (occurrence: AU)
  Receive Date: 20121005
  Receipt Date: 20121210
  Transmission Date: 20130627
  Serious: Yes (Other)
  Sender: FDA-Public Use
  Company Number: AU-GLAXOSMITHKLINE-B0835397A

PATIENT
  Sex: Female

DRUGS (1)
  1. ASMOL [Suspect]
     Indication: ASTHMA
     Dosage: 100MCG Unknown
     Route: 055

REACTIONS (3)
  - Choking [Recovered/Resolved]
  - Device breakage [Unknown]
  - Product quality issue [Unknown]
